FAERS Safety Report 19082524 (Version 1)
Quarter: 2021Q2

REPORT INFORMATION
  Report Type: Spontaneous
  Country: US (occurrence: US)
  Receive Date: 20210401
  Receipt Date: 20210401
  Transmission Date: 20210717
  Serious: Yes (Hospitalization)
  Sender: FDA-Public Use
  Company Number: None

PATIENT
  Age: 55 Year
  Sex: Female
  Weight: 81 kg

DRUGS (7)
  1. TIZANIDINE. [Concomitant]
     Active Substance: TIZANIDINE
  2. TRELEGY ELLIPTA [Concomitant]
     Active Substance: FLUTICASONE FUROATE\UMECLIDINIUM BROMIDE\VILANTEROL TRIFENATATE
  3. VITAMINS [Concomitant]
     Active Substance: VITAMINS
  4. PROAIR INHALER [Concomitant]
     Active Substance: ALBUTEROL SULFATE
  5. PRILOSEC [Concomitant]
     Active Substance: OMEPRAZOLE MAGNESIUM
  6. BAMLANIVIMAB INFUSION [Suspect]
     Active Substance: BAMLANIVIMAB
     Indication: COVID-19
     Dosage: ?          OTHER FREQUENCY:ONCE;?
     Route: 042
     Dates: start: 20210311, end: 20210311
  7. ALLEGRA [Concomitant]
     Active Substance: FEXOFENADINE HYDROCHLORIDE

REACTIONS (9)
  - Pain [None]
  - Asthenia [None]
  - Tremor [None]
  - Pyrexia [None]
  - General physical health deterioration [None]
  - Dyspnoea [None]
  - Gait disturbance [None]
  - Pneumonia [None]
  - Respiratory failure [None]

NARRATIVE: CASE EVENT DATE: 20210311
